FAERS Safety Report 6250275-1 (Version None)
Quarter: 2009Q2

REPORT INFORMATION
  Report Type: 
  Country: None (occurrence: None)
  Receive Date: 20090626
  Receipt Date: 20090626
  Transmission Date: 20091009
  Serious: No
  Sender: FDA-Public Use
  Company Number: None

PATIENT

DRUGS (6)
  1. CIPRO [Suspect]
     Indication: ABDOMINAL INFECTION
     Dosage: 750 MG BID PO
     Route: 048
     Dates: start: 20090419, end: 20090420
  2. KALETRA [Concomitant]
  3. MYAMBUTOL [Concomitant]
  4. MYCOBALAMIN [Concomitant]
  5. SEPTRA DS [Concomitant]
  6. SYNTHROID [Concomitant]

REACTIONS (1)
  - RASH [None]
